FAERS Safety Report 24682130 (Version 1)
Quarter: 2024Q4

REPORT INFORMATION
  Report Type: Spontaneous
  Country: US (occurrence: US)
  Receive Date: 20241130
  Receipt Date: 20241130
  Transmission Date: 20250115
  Serious: Yes (Other)
  Sender: AUROBINDO
  Company Number: US-AUROBINDO-AUR-APL-2024-057787

PATIENT
  Age: 22 Year
  Sex: Female

DRUGS (7)
  1. BUSULFAN [Suspect]
     Active Substance: BUSULFAN
     Indication: Bone marrow conditioning regimen
     Dosage: UNK
     Route: 065
  2. CYCLOPHOSPHAMIDE [Suspect]
     Active Substance: CYCLOPHOSPHAMIDE
     Indication: Bone marrow conditioning regimen
     Dosage: UNK
     Route: 065
  3. ELAGOLIX [Concomitant]
     Active Substance: ELAGOLIX
     Indication: Endometriosis
     Dosage: UNK
     Route: 065
  4. ELAGOLIX [Concomitant]
     Active Substance: ELAGOLIX
     Indication: Arthralgia
  5. ESTRADIOL [Concomitant]
     Active Substance: ESTRADIOL
     Indication: Ovarian failure
     Dosage: UNK
     Route: 062
  6. MEDROXYPROGESTERONE [Concomitant]
     Active Substance: MEDROXYPROGESTERONE
     Indication: Heavy menstrual bleeding
     Dosage: UNK
     Route: 048
  7. NORETHINDRONE [Concomitant]
     Active Substance: NORETHINDRONE
     Indication: Arthralgia
     Dosage: UNK
     Route: 065

REACTIONS (1)
  - Drug ineffective [Unknown]
